FAERS Safety Report 8318302 (Version 3)
Quarter: 2013Q2

REPORT INFORMATION
  Report Type: Spontaneous
  Country: US (occurrence: US)
  Receive Date: 20120103
  Receipt Date: 20130621
  Transmission Date: 20140414
  Serious: No
  Sender: FDA-Public Use
  Company Number: US-JNJFOC-20120100043

PATIENT
  Sex: Female
  Weight: 74.84 kg

DRUGS (8)
  1. SANDOZ FENTANYL TRANSDERMAL SYSTEM [Suspect]
     Indication: MIGRAINE
     Route: 062
  2. SANDOZ FENTANYL TRANSDERMAL SYSTEM [Suspect]
     Indication: HEADACHE
     Route: 062
  3. DURAGESIC [Suspect]
     Indication: PAIN MANAGEMENT
     Route: 062
     Dates: start: 2010
  4. DURAGESIC [Suspect]
     Indication: MIGRAINE
     Route: 062
     Dates: start: 2010
  5. DURAGESIC [Suspect]
     Indication: HEADACHE
     Route: 062
     Dates: start: 2010
  6. MYLAN FENTANYL TRANSDERMAL SYSTEM [Suspect]
     Indication: PRODUCT USED FOR UNKNOWN INDICATION
     Route: 062
     Dates: start: 2008
  7. PERCOCET [Concomitant]
     Indication: MIGRAINE
     Route: 048
  8. PERCOCET [Concomitant]
     Indication: HEADACHE
     Route: 048

REACTIONS (9)
  - Wrong technique in drug usage process [Unknown]
  - Drug administered at inappropriate site [Not Recovered/Not Resolved]
  - Pruritus [Not Recovered/Not Resolved]
  - Rash [Not Recovered/Not Resolved]
  - Application site erosion [Not Recovered/Not Resolved]
  - Wrong technique in drug usage process [Not Recovered/Not Resolved]
  - Drug ineffective [Recovered/Resolved]
  - Drug ineffective [Recovered/Resolved]
  - Product quality issue [Not Recovered/Not Resolved]
